FAERS Safety Report 23300183 (Version 2)
Quarter: 2023Q4

REPORT INFORMATION
  Report Type: Spontaneous
  Country: AU (occurrence: AU)
  Receive Date: 20231215
  Receipt Date: 20231218
  Transmission Date: 20240110
  Serious: Yes (Other)
  Sender: FDA-Public Use
  Company Number: AU-GLAXOSMITHKLINE-AUCH2023016480

PATIENT
  Sex: Male

DRUGS (1)
  1. DICLOFENAC DIETHYLAMINE [Suspect]
     Active Substance: DICLOFENAC DIETHYLAMINE
     Indication: Back pain
     Dosage: UNK
     Route: 065
     Dates: start: 20230413

REACTIONS (2)
  - Neoplasm malignant [Unknown]
  - Diabetes mellitus [Unknown]
